FAERS Safety Report 13653526 (Version 1)
Quarter: 2017Q2

REPORT INFORMATION
  Report Type: Spontaneous
  Country: US (occurrence: US)
  Receive Date: 20170614
  Receipt Date: 20170614
  Transmission Date: 20170830
  Serious: No
  Sender: FDA-Public Use
  Company Number: US-ROCHE-1304797

PATIENT
  Sex: Female

DRUGS (3)
  1. XELODA [Suspect]
     Active Substance: CAPECITABINE
     Indication: METASTASES TO BONE MARROW
  2. XELODA [Suspect]
     Active Substance: CAPECITABINE
     Indication: BREAST CANCER IN SITU
  3. XELODA [Suspect]
     Active Substance: CAPECITABINE
     Indication: BONE CANCER
     Dosage: 500 14 DAYS ON 7 DAYS OFF
     Route: 048
     Dates: start: 20131025, end: 20131114

REACTIONS (1)
  - Drug intolerance [Unknown]
